FAERS Safety Report 16295206 (Version 1)
Quarter: 2019Q2

REPORT INFORMATION
  Report Type: Spontaneous
  Country: US (occurrence: US)
  Receive Date: 20190509
  Receipt Date: 20190509
  Transmission Date: 20190711
  Serious: No
  Sender: FDA-Public Use
  Company Number: US-ROCHE-2102136

PATIENT
  Age: 90 Year
  Sex: Male
  Weight: 98.52 kg

DRUGS (2)
  1. ESBRIET [Suspect]
     Active Substance: PIRFENIDONE
     Indication: IDIOPATHIC PULMONARY FIBROSIS
     Route: 048
  2. ESBRIET [Suspect]
     Active Substance: PIRFENIDONE
     Dosage: ONGOING: YES
     Route: 048
     Dates: start: 20180207

REACTIONS (7)
  - Tongue discolouration [Unknown]
  - Sneezing [Unknown]
  - Ageusia [Unknown]
  - Cough [Unknown]
  - Dysgeusia [Unknown]
  - Rhinitis [Unknown]
  - Nasal congestion [Unknown]

NARRATIVE: CASE EVENT DATE: 201803
